FAERS Safety Report 7070997-2 (Version None)
Quarter: 2010Q4

REPORT INFORMATION
  Report Type: 
  Country: None (occurrence: None)
  Receive Date: 20101029
  Receipt Date: 20101026
  Transmission Date: 20110411
  Serious: Yes (Other)
  Sender: FDA-Public Use
  Company Number: US-BRISTOL-MYERS SQUIBB COMPANY-15353956

PATIENT

DRUGS (3)
  1. IXEMPRA KIT [Suspect]
     Dosage: RECEIVED 2 WEEKLY DOSES
  2. TOPROL-XL [Suspect]
     Dosage: DECREASED TO 50MG
  3. HERCEPTIN [Suspect]

REACTIONS (2)
  - BRADYCARDIA [None]
  - EJECTION FRACTION DECREASED [None]
